FAERS Safety Report 21461357 (Version 3)
Quarter: 2023Q4

REPORT INFORMATION
  Report Type: Report from Study
  Country: US (occurrence: US)
  Receive Date: 20221015
  Receipt Date: 20231218
  Transmission Date: 20240110
  Serious: No
  Sender: FDA-Public Use
  Company Number: US-ABBVIE-22K-163-4522491-00

PATIENT
  Sex: Female

DRUGS (2)
  1. HUMIRA [Suspect]
     Active Substance: ADALIMUMAB
     Indication: Rheumatoid arthritis
     Dosage: FORM STRENGTH: 40MILLIGRAM?LAST ADMIN DATE: 2023
     Route: 058
     Dates: start: 20230828
  2. HUMIRA [Suspect]
     Active Substance: ADALIMUMAB
     Dosage: CITRATE FREE
     Route: 058

REACTIONS (13)
  - Discharge [Not Recovered/Not Resolved]
  - Therapeutic product effect decreased [Not Recovered/Not Resolved]
  - Injection site erythema [Not Recovered/Not Resolved]
  - Alopecia [Unknown]
  - Diarrhoea [Not Recovered/Not Resolved]
  - Increased tendency to bruise [Unknown]
  - Injection site bruising [Unknown]
  - Injection site pruritus [Unknown]
  - Pain [Not Recovered/Not Resolved]
  - Rash [Not Recovered/Not Resolved]
  - Arthropathy [Not Recovered/Not Resolved]
  - Injection site swelling [Not Recovered/Not Resolved]
  - Rheumatoid arthritis [Not Recovered/Not Resolved]
